FAERS Safety Report 7220774-4 (Version None)
Quarter: 2011Q1

REPORT INFORMATION
  Report Type: 
  Country: None (occurrence: None)
  Receive Date: 20110111
  Receipt Date: 20110110
  Transmission Date: 20110831
  Serious: Yes (Other)
  Sender: FDA-Public Use
  Company Number: US-BRISTOL-MYERS SQUIBB COMPANY-15477862

PATIENT
  Age: 80 Year
  Sex: Female

DRUGS (4)
  1. COUMADIN [Suspect]
     Dosage: MISSED FOR 1 DAY
  2. LANTUS [Concomitant]
     Dosage: 1DF:34-35 UNITES ROUTE:OPTICLICK
  3. PLAVIX [Suspect]
     Indication: TRANSIENT ISCHAEMIC ATTACK
     Dosage: DURATION:7-8 YEARS
  4. NOVOLOG [Concomitant]
     Indication: HYPOGLYCAEMIA

REACTIONS (2)
  - TRANSIENT ISCHAEMIC ATTACK [None]
  - MYOCARDIAL INFARCTION [None]
